FAERS Safety Report 9643280 (Version 5)
Quarter: 2014Q1

REPORT INFORMATION
  Report Type: Spontaneous
  Country: US (occurrence: US)
  Receive Date: 20131024
  Receipt Date: 20140313
  Transmission Date: 20141002
  Serious: Yes (Other)
  Sender: FDA-Public Use
  Company Number: US-ROCHE-1286631

PATIENT
  Sex: Female

DRUGS (4)
  1. AVASTIN [Suspect]
     Indication: MACULAR DEGENERATION
     Dosage: INJECTED 3 TIMES ONLY
     Route: 050
  2. AVASTIN [Suspect]
     Indication: AGE-RELATED MACULAR DEGENERATION
  3. LUCENTIS [Suspect]
     Indication: MACULAR DEGENERATION
     Route: 050
  4. FOSAMAX [Concomitant]

REACTIONS (14)
  - Eye haemorrhage [Unknown]
  - Blindness [Unknown]
  - Ocular hyperaemia [Unknown]
  - Balance disorder [Unknown]
  - Fall [Unknown]
  - Pain [Unknown]
  - Sensation of pressure [Unknown]
  - Judgement impaired [Unknown]
  - Feeling abnormal [Unknown]
  - Pain [Unknown]
  - Eye pain [Unknown]
  - Visual acuity reduced [Not Recovered/Not Resolved]
  - Oral disorder [Not Recovered/Not Resolved]
  - Medication error [Unknown]
